FAERS Safety Report 24882444 (Version 1)
Quarter: 2025Q1

REPORT INFORMATION
  Report Type: Report from Study
  Country: DE (occurrence: DE)
  Receive Date: 20250124
  Receipt Date: 20250124
  Transmission Date: 20250409
  Serious: Yes (Life-Threatening, Hospitalization)
  Sender: ACCORD
  Company Number: None

PATIENT
  Sex: Male

DRUGS (14)
  1. METHOTREXATE [Suspect]
     Active Substance: METHOTREXATE
     Indication: Axial spondyloarthritis
     Dosage: 10 MG, QW
     Dates: start: 20111128
  2. DICLOFENAC [Suspect]
     Active Substance: DICLOFENAC
     Indication: Product used for unknown indication
     Dates: start: 20100303
  3. SECUKINUMAB [Suspect]
     Active Substance: SECUKINUMAB
     Indication: Axial spondyloarthritis
     Dates: start: 20180508, end: 20180604
  4. NOVALGIN [Concomitant]
     Indication: Product used for unknown indication
  5. TORSEMIDE [Concomitant]
     Active Substance: TORSEMIDE
     Indication: Product used for unknown indication
  6. AMOXICILLIN\CLAVULANATE POTASSIUM [Concomitant]
     Active Substance: AMOXICILLIN\CLAVULANATE POTASSIUM
     Indication: Product used for unknown indication
  7. ASPIRIN [Concomitant]
     Active Substance: ASPIRIN
     Indication: Product used for unknown indication
  8. ATORVASTATIN [Concomitant]
     Active Substance: ATORVASTATIN
     Indication: Product used for unknown indication
  9. FOLIC ACID [Concomitant]
     Active Substance: FOLIC ACID
     Indication: Product used for unknown indication
  10. HYDROCHLOROTHIAZIDE [Concomitant]
     Active Substance: HYDROCHLOROTHIAZIDE
     Indication: Product used for unknown indication
  11. METOPROLOL [Concomitant]
     Active Substance: METOPROLOL
     Indication: Product used for unknown indication
  12. SECUKINUMAB [Suspect]
     Active Substance: SECUKINUMAB
     Indication: Axial spondyloarthritis
     Route: 042
     Dates: start: 20180605
  13. SECUKINUMAB [Suspect]
     Active Substance: SECUKINUMAB
     Indication: Axial spondyloarthritis
     Dates: start: 20100303
  14. DICLOFENAC [Suspect]
     Active Substance: DICLOFENAC
     Indication: Product used for unknown indication
     Dates: start: 20161031

REACTIONS (2)
  - Coronary artery disease [Recovered/Resolved]
  - Acute myocardial infarction [Recovered/Resolved]

NARRATIVE: CASE EVENT DATE: 20230207
